FAERS Safety Report 12852973 (Version 1)
Quarter: 2016Q4

REPORT INFORMATION
  Report Type: Spontaneous
  Country: US (occurrence: US)
  Receive Date: 20161016
  Receipt Date: 20161016
  Transmission Date: 20170207
  Serious: Yes (Life-Threatening, Disabling)
  Sender: FDA-Public Use
  Company Number: None

PATIENT
  Age: 86 Year
  Sex: Female
  Weight: 45 kg

DRUGS (2)
  1. GABAPENTIN. [Suspect]
     Active Substance: GABAPENTIN
     Indication: ABNORMAL BEHAVIOUR
     Route: 048
     Dates: start: 20161009
  2. SEROQUEL [Suspect]
     Active Substance: QUETIAPINE FUMARATE
     Indication: ABNORMAL BEHAVIOUR
     Dates: start: 20161009

REACTIONS (3)
  - Confusional state [None]
  - Communication disorder [None]
  - Condition aggravated [None]

NARRATIVE: CASE EVENT DATE: 20161014
